FAERS Safety Report 9339995 (Version 1)
Quarter: 2013Q2

REPORT INFORMATION
  Report Type: Spontaneous
  Country: GB (occurrence: None)
  Receive Date: 20130605
  Receipt Date: 20130605
  Transmission Date: 20140414
  Serious: Yes (Hospitalization)
  Sender: FDA-Public Use
  Company Number: 1734512

PATIENT
  Age: 70 Year
  Sex: Female
  Weight: 61 kg

DRUGS (11)
  1. (VINCRISTINE SULFATE) [Suspect]
     Indication: DIFFUSE LARGE B-CELL LYMPHOMA
     Dates: start: 20130201
  2. DOXORUBICIN HYDROCHLORIDE [Suspect]
     Indication: DIFFUSE LARGE B-CELL LYMPHOMA
     Route: 042
     Dates: start: 20130201
  3. RITUXIMAB [Suspect]
     Indication: DIFFUSE LARGE B-CELL LYMPHOMA
     Dates: start: 20130201
  4. PREDISOLONE [Suspect]
     Indication: DIFFUSE LARGE B-CELL LYMPHOMA
     Dates: start: 20130201
  5. CYCLOPHOSPHAMIDE [Suspect]
     Indication: DIFFUSE LARGE B-CELL LYMPHOMA
     Dates: start: 20130201
  6. (TRAMADOL) [Concomitant]
  7. (PARACETAMOL) [Concomitant]
  8. (ALLOPURINOL) [Concomitant]
  9. (OMEPRAZOLE) [Concomitant]
  10. (MORPHINE SULFATE) [Concomitant]
  11. (LEVOTHYROXINE) [Concomitant]

REACTIONS (3)
  - Pneumonia [None]
  - Pyrexia [None]
  - Nausea [None]
